FAERS Safety Report 19480727 (Version 1)
Quarter: 2021Q2

REPORT INFORMATION
  Report Type: Report from Study
  Country: DE (occurrence: DE)
  Receive Date: 20210630
  Receipt Date: 20210630
  Transmission Date: 20210717
  Serious: Yes (Other)
  Sender: FDA-Public Use
  Company Number: DE-SEATTLE GENETICS-2018SGN02394

PATIENT

DRUGS (1)
  1. BRENTUXIMAB VEDOTIN?MPI [Suspect]
     Active Substance: BRENTUXIMAB VEDOTIN
     Indication: HODGKIN^S DISEASE
     Route: 065

REACTIONS (3)
  - Neuropathy peripheral [Unknown]
  - Toxicity to various agents [Unknown]
  - Hodgkin^s disease recurrent [Unknown]
